FAERS Safety Report 13913256 (Version 1)
Quarter: 2017Q3

REPORT INFORMATION
  Report Type: Spontaneous
  Country: US (occurrence: US)
  Receive Date: 20170828
  Receipt Date: 20170828
  Transmission Date: 20171127
  Serious: No
  Sender: FDA-Public Use
  Company Number: US-ROCHE-1125515

PATIENT
  Sex: Female
  Weight: 82.17 kg

DRUGS (17)
  1. NUTROPIN AQ [Suspect]
     Active Substance: SOMATROPIN
     Indication: DWARFISM
     Route: 058
     Dates: start: 200204
  2. TYLENOL [Concomitant]
     Active Substance: ACETAMINOPHEN
     Route: 065
  3. ESTRATEST H.S. [Concomitant]
  4. SYNTHROID [Concomitant]
     Active Substance: LEVOTHYROXINE SODIUM
     Route: 065
  5. CANESTEN [Concomitant]
     Active Substance: CLOTRIMAZOLE
     Route: 065
  6. PROZAC [Concomitant]
     Active Substance: FLUOXETINE HYDROCHLORIDE
     Dosage: IN AM AND NOON
     Route: 065
  7. LIMBITROL [Concomitant]
     Active Substance: AMITRIPTYLINE\CHLORDIAZEPOXIDE
     Dosage: DOSE: 5-12-5
     Route: 065
  8. ULTRACET [Concomitant]
     Active Substance: ACETAMINOPHEN\TRAMADOL HYDROCHLORIDE
     Dosage: DOSE: 1-2 AT 6 PM
     Route: 048
  9. PROTOPIC [Concomitant]
     Active Substance: TACROLIMUS
     Route: 061
  10. NUTROPIN AQ [Suspect]
     Active Substance: SOMATROPIN
     Indication: GROWTH HORMONE DEFICIENCY
  11. BEXTRA [Concomitant]
     Active Substance: VALDECOXIB
     Route: 065
  12. SKELAXIN [Concomitant]
     Active Substance: METAXALONE
     Dosage: DOSE: 40D
     Route: 048
  13. LIMBITROL [Concomitant]
     Active Substance: AMITRIPTYLINE\CHLORDIAZEPOXIDE
     Route: 065
  14. L-LYSINE [Concomitant]
     Active Substance: LYSINE
     Route: 065
  15. ZANAFLEX [Concomitant]
     Active Substance: TIZANIDINE HYDROCHLORIDE
     Route: 048
  16. BEXTRA [Concomitant]
     Active Substance: VALDECOXIB
     Route: 065
  17. PERCOLONE [Concomitant]
     Active Substance: OXYCODONE HYDROCHLORIDE
     Dosage: EVERY 4-5 PM
     Route: 065

REACTIONS (8)
  - Urticaria [Unknown]
  - Fatigue [Unknown]
  - Arthropathy [Unknown]
  - Cheilitis [Unknown]
  - Stomatitis [Unknown]
  - Skin ulcer [Unknown]
  - Swelling [Unknown]
  - Pain [Unknown]
